FAERS Safety Report 4506460-X (Version None)
Quarter: 2004Q4

REPORT INFORMATION
  Report Type: 
  Country: None (occurrence: None)
  Receive Date: 20041122
  Receipt Date: 20041109
  Transmission Date: 20050328
  Serious: Yes (Hospitalization, Other)
  Sender: FDA-Public Use
  Company Number: FR-JNJFOC-20030702962

PATIENT
  Age: 28 Year
  Sex: Female

DRUGS (12)
  1. INFLIXIMAB [Suspect]
     Route: 042
  2. INFLIXIMAB [Suspect]
     Route: 042
  3. NAPROXEN [Suspect]
     Indication: DRUG USE FOR UNKNOWN INDICATION
  4. SULFAMETHOXAZOLE [Suspect]
  5. PREDNISONE [Concomitant]
  6. TRIMETHOPRIM [Concomitant]
  7. DEDROGYL [Concomitant]
  8. CALCIUM [Concomitant]
  9. ACETAMINOPHEN W/ CODEINE [Concomitant]
  10. ACETAMINOPHEN W/ CODEINE [Concomitant]
  11. CYCLOPHOSPHAMIDE [Concomitant]
  12. AZATHIOPRINE [Concomitant]

REACTIONS (25)
  - ACIDOSIS [None]
  - COAGULATION FACTOR V LEVEL DECREASED [None]
  - COMA [None]
  - CONDITION AGGRAVATED [None]
  - DEPRESSED LEVEL OF CONSCIOUSNESS [None]
  - DERMATITIS EXFOLIATIVE [None]
  - DRUG INTERACTION POTENTIATION [None]
  - EFFUSION [None]
  - ENCEPHALOPATHY [None]
  - ERYTHEMA [None]
  - HEPATIC FAILURE [None]
  - HEPATIC NECROSIS [None]
  - HEPATITIS B [None]
  - HEPATITIS FULMINANT [None]
  - HEPATOTOXICITY [None]
  - HYPOTENSION [None]
  - INFUSION RELATED REACTION [None]
  - JAUNDICE [None]
  - LIVER DISORDER [None]
  - LIVER TRANSPLANT [None]
  - MALAISE [None]
  - PRURIGO [None]
  - PYREXIA [None]
  - RASH MACULO-PAPULAR [None]
  - URTICARIA [None]
